FAERS Safety Report 4366502-1 (Version None)
Quarter: 2004Q2

REPORT INFORMATION
  Report Type: 
  Country: None (occurrence: None)
  Receive Date: 20040527
  Receipt Date: 20040427
  Transmission Date: 20050107
  Serious: No
  Sender: FDA-Public Use
  Company Number: US-BRISTOL-MYERS SQUIBB COMPANY-12573226

PATIENT
  Age: 58 Year
  Sex: Female
  Weight: 88 kg

DRUGS (4)
  1. ERBITUX [Suspect]
     Indication: COLON CANCER
     Route: 042
     Dates: start: 20040323, end: 20040323
  2. DECADRON [Concomitant]
     Indication: PREMEDICATION
     Route: 042
     Dates: start: 20040323, end: 20040323
  3. KYTRIL [Concomitant]
     Indication: PREMEDICATION
     Route: 042
     Dates: start: 20040323, end: 20040323
  4. IRINOTECAN [Concomitant]
     Route: 042
     Dates: start: 20040323, end: 20040323

REACTIONS (4)
  - DERMATITIS ACNEIFORM [None]
  - ERYTHEMA [None]
  - EYE IRRITATION [None]
  - EYE SWELLING [None]
